FAERS Safety Report 8278078-7 (Version None)
Quarter: 2012Q2

REPORT INFORMATION
  Report Type: 
  Country: None (occurrence: None)
  Receive Date: 20120412
  Receipt Date: 20111024
  Transmission Date: 20120825
  Serious: No
  Sender: FDA-Public Use
  Company Number: US-ASTRAZENECA-2011SE64040

PATIENT
  Age: 77 Year
  Sex: Male
  Weight: 99.8 kg

DRUGS (3)
  1. ZOLAPRIN [Concomitant]
  2. NEXIUM [Suspect]
     Indication: GASTRITIS PROPHYLAXIS
     Route: 048
  3. METADOPA [Concomitant]

REACTIONS (2)
  - ARTHRITIS [None]
  - INCORRECT DRUG ADMINISTRATION DURATION [None]
